FAERS Safety Report 17445073 (Version 1)
Quarter: 2020Q1

REPORT INFORMATION
  Report Type: Spontaneous
  Country: AR (occurrence: AR)
  Receive Date: 20200221
  Receipt Date: 20200221
  Transmission Date: 20200409
  Serious: Yes (Hospitalization)
  Sender: FDA-Public Use
  Company Number: AR-TEVA-2020-AR-1188681

PATIENT
  Age: 77 Year
  Sex: Male

DRUGS (4)
  1. NEBIVOLOL. [Suspect]
     Active Substance: NEBIVOLOL
     Route: 065
  2. ROSUVASTATIN. [Suspect]
     Active Substance: ROSUVASTATIN
     Route: 065
  3. AMIODARONE [Suspect]
     Active Substance: AMIODARONE
     Route: 065
  4. SYNCROCOR [Suspect]
     Active Substance: NEBIVOLOL HYDROCHLORIDE
     Indication: CARDIOVASCULAR DISORDER
     Route: 065

REACTIONS (4)
  - Heart rate irregular [Recovering/Resolving]
  - Reading disorder [Recovering/Resolving]
  - Embolism [Recovering/Resolving]
  - Deposit eye [Recovered/Resolved]

NARRATIVE: CASE EVENT DATE: 202002
